FAERS Safety Report 7829389-8 (Version None)
Quarter: 2011Q4

REPORT INFORMATION
  Report Type: 
  Country: None (occurrence: None)
  Receive Date: 20111020
  Receipt Date: 20111012
  Transmission Date: 20120403
  Serious: Yes (Death, Other)
  Sender: FDA-Public Use
  Company Number: US-MPIJNJ-2011-04896

PATIENT
  Sex: Female

DRUGS (6)
  1. VELCADE [Suspect]
     Indication: IMMUNE TOLERANCE INDUCTION
     Dosage: 1.3 MG/M2, CYCLIC
  2. DIPHENHYDRAMINE HCL [Concomitant]
     Indication: PROPHYLAXIS
  3. MYCOPHENOLATE MOFETIL [Concomitant]
     Indication: PRODUCT USED FOR UNKNOWN INDICATION
  4. PREDNISONE [Concomitant]
     Indication: PRODUCT USED FOR UNKNOWN INDICATION
  5. ACETAMINOPHEN [Concomitant]
     Indication: PROPHYLAXIS
  6. TACROLIMUS [Concomitant]
     Indication: PRODUCT USED FOR UNKNOWN INDICATION

REACTIONS (6)
  - GRAFT DYSFUNCTION [None]
  - ANAEMIA [None]
  - SEPSIS [None]
  - URINARY TRACT INFECTION BACTERIAL [None]
  - MULTI-ORGAN FAILURE [None]
  - STAPHYLOCOCCAL INFECTION [None]
